FAERS Safety Report 9467009 (Version 1)
Quarter: 2013Q3

REPORT INFORMATION
  Report Type: Spontaneous
  Country: CA (occurrence: CA)
  Receive Date: 20130820
  Receipt Date: 20130820
  Transmission Date: 20140515
  Serious: Yes (Death)
  Sender: FDA-Public Use
  Company Number: CA-GLAXOSMITHKLINE-A1034295A

PATIENT
  Sex: Male

DRUGS (1)
  1. VOTRIENT [Suspect]
     Indication: SARCOMA
     Dosage: 800MG PER DAY
     Route: 065

REACTIONS (6)
  - Hair colour changes [Unknown]
  - Back pain [Unknown]
  - Dysphagia [Unknown]
  - Ill-defined disorder [Unknown]
  - Gait disturbance [Unknown]
  - Death [Fatal]
